FAERS Safety Report 12054309 (Version 1)
Quarter: 2016Q1

REPORT INFORMATION
  Report Type: Report from Study
  Country: KR (occurrence: KR)
  Receive Date: 20160209
  Receipt Date: 20160209
  Transmission Date: 20160526
  Serious: Yes (Death)
  Sender: FDA-Public Use
  Company Number: KR-PFIZER INC-2009205113

PATIENT
  Age: 70 Year
  Sex: Male
  Weight: 67.6 kg

DRUGS (20)
  1. CRESTOR [Concomitant]
     Active Substance: ROSUVASTATIN CALCIUM
     Indication: HYPERLIPIDAEMIA
     Dosage: UNK
     Dates: start: 1999
  2. LEVOPRIDE [Concomitant]
     Indication: DYSPEPSIA
     Dosage: UNK
     Dates: start: 2009, end: 20090414
  3. AXITINIB [Suspect]
     Active Substance: AXITINIB
     Indication: GASTRIC CANCER
     Dosage: 5 MG, 2X/DAY, ON DAYS 1 TO 21 OF A 21 DAY CYCLE
     Route: 048
     Dates: start: 20090415, end: 20090428
  4. CISPLATIN. [Suspect]
     Active Substance: CISPLATIN
     Indication: GASTRIC CANCER
     Dosage: 142 MG ON DAY 1 OF A 21 DAY CYCLE
     Route: 042
     Dates: start: 20090415, end: 20090415
  5. DILATREND [Concomitant]
     Active Substance: CARVEDILOL
     Indication: HYPERTENSION
     Dosage: UNK
     Dates: start: 20090414
  6. MEGEROL(MEGESTROL ACETATE) [Concomitant]
     Indication: DECREASED APPETITE
     Dosage: UNK
     Dates: start: 20090422
  7. PARIET [Concomitant]
     Active Substance: RABEPRAZOLE SODIUM
     Indication: DYSPEPSIA
     Dosage: UNK
     Dates: start: 20090408
  8. RECOMIDE [Concomitant]
     Indication: DYSPEPSIA
     Dosage: UNK
     Dates: start: 20090407, end: 20090414
  9. CAPECITABINE. [Suspect]
     Active Substance: CAPECITABINE
     Indication: GASTRIC CANCER
     Dosage: 1800 MG, TWICE DAILY, DAY 1 TO DAY 14, EVERY 21 DAYS
     Route: 048
     Dates: start: 20090415, end: 20090428
  10. COUGHSTI SYR(DRIED IVY LEAF) [Concomitant]
     Indication: COUGH
     Dosage: UNK
     Dates: start: 20090411, end: 20090415
  11. COZAAR [Concomitant]
     Active Substance: LOSARTAN POTASSIUM
     Indication: HYPERTENSION
     Dosage: UNK
     Dates: start: 1999
  12. MEXOLON [Concomitant]
     Indication: NAUSEA
     Dosage: UNK
     Dates: start: 20090415
  13. ULCERMIN /00434701/ [Concomitant]
     Indication: DYSPEPSIA
     Dosage: UNK
     Dates: start: 20090422
  14. ALOXI [Concomitant]
     Active Substance: PALONOSETRON HYDROCHLORIDE
     Indication: NAUSEA
     Dosage: UNK
     Dates: start: 20090415, end: 20090415
  15. DEXAMETHASONE. [Concomitant]
     Active Substance: DEXAMETHASONE
     Indication: PREMEDICATION
     Dosage: UNK
     Dates: start: 20090415, end: 20090418
  16. MOKTIN [Concomitant]
     Indication: PRODUCTIVE COUGH
     Dosage: UNK
     Dates: start: 20090413, end: 20090414
  17. ASPIRIN PROTECT [Concomitant]
     Active Substance: ASPIRIN
     Indication: ANTIPLATELET THERAPY
     Dosage: UNK
     Dates: start: 1998
  18. BACLOFEN. [Concomitant]
     Active Substance: BACLOFEN
     Indication: HICCUPS
     Dosage: UNK
     Dates: start: 20090420
  19. MONILAC [Concomitant]
     Active Substance: LACTULOSE
     Indication: CONSTIPATION
     Dosage: UNK
     Dates: start: 20090411
  20. MANNITOL. [Concomitant]
     Active Substance: MANNITOL
     Indication: PREMEDICATION
     Dosage: UNK
     Dates: start: 20090415, end: 20090415

REACTIONS (1)
  - Aortic aneurysm rupture [Fatal]

NARRATIVE: CASE EVENT DATE: 20090428
